FAERS Safety Report 16982339 (Version 1)
Quarter: 2019Q4

REPORT INFORMATION
  Report Type: Spontaneous
  Country: AT (occurrence: AT)
  Receive Date: 20191101
  Receipt Date: 20191101
  Transmission Date: 20200122
  Serious: Yes (Other)
  Sender: FDA-Public Use
  Company Number: AT-TEVA-2019-AT-1129898

PATIENT
  Age: 25 Year
  Sex: Male

DRUGS (1)
  1. NAPROBENE [Suspect]
     Active Substance: NAPROXEN
     Route: 048
     Dates: start: 20190812, end: 20190812

REACTIONS (3)
  - Type I hypersensitivity [Recovered/Resolved]
  - Rash [Recovered/Resolved]
  - Lip swelling [Recovered/Resolved]

NARRATIVE: CASE EVENT DATE: 20190812
